FAERS Safety Report 24439000 (Version 1)
Quarter: 2024Q4

REPORT INFORMATION
  Report Type: Spontaneous
  Country: CU (occurrence: None)
  Receive Date: 20241012
  Receipt Date: 20241012
  Transmission Date: 20250115
  Serious: Yes (Life-Threatening, Hospitalization, Disabling, Congenital Anomaly, Other)
  Sender: Public
  Company Number: None

PATIENT
  Age: 0 Year
  Sex: Male
  Weight: 65 kg

DRUGS (2)
  1. ORAP [Suspect]
     Active Substance: PIMOZIDE
     Dosage: FREQUENCY : DAILY;?
     Route: 048
  2. PIMOZIDE [Concomitant]
     Active Substance: PIMOZIDE

REACTIONS (1)
  - Hospitalisation [None]

NARRATIVE: CASE EVENT DATE: 19750519
